FAERS Safety Report 5234637-7 (Version None)
Quarter: 2007Q1

REPORT INFORMATION
  Report Type: 
  Country: None (occurrence: None)
  Receive Date: 20070209
  Receipt Date: 20070129
  Transmission Date: 20070707
  Serious: Yes (Other)
  Sender: FDA-Public Use
  Company Number: US-PFIZER INC-2005015755

PATIENT
  Sex: Female

DRUGS (10)
  1. NEURONTIN [Suspect]
     Indication: CONVULSION
     Route: 065
     Dates: start: 19990101, end: 20030701
  2. NEURONTIN [Suspect]
     Indication: BIPOLAR DISORDER
  3. DEPAKOTE [Concomitant]
  4. CELEXA [Concomitant]
  5. ESKALITH [Concomitant]
  6. OXAZOLAM [Concomitant]
  7. XANAX [Concomitant]
  8. LITHIUM CARBONATE [Concomitant]
  9. LEVOXYL [Concomitant]
  10. KLONOPIN [Concomitant]

REACTIONS (13)
  - ANXIETY [None]
  - APPETITE DISORDER [None]
  - CEREBROVASCULAR ACCIDENT [None]
  - CONVULSION [None]
  - DEPRESSION [None]
  - FEEDING DISORDER [None]
  - FEELING ABNORMAL [None]
  - LETHARGY [None]
  - LOSS OF CONSCIOUSNESS [None]
  - OVERDOSE [None]
  - SLEEP DISORDER [None]
  - STRESS [None]
  - SUICIDAL IDEATION [None]
